FAERS Safety Report 13429743 (Version 1)
Quarter: 2017Q2

REPORT INFORMATION
  Report Type: Spontaneous
  Country: US (occurrence: US)
  Receive Date: 20170412
  Receipt Date: 20170412
  Transmission Date: 20170830
  Serious: Yes (Other)
  Sender: FDA-Public Use
  Company Number: US-AMGEN-USASP2017053382

PATIENT
  Age: 66 Year
  Sex: Female

DRUGS (1)
  1. PROLIA [Suspect]
     Active Substance: DENOSUMAB
     Indication: OSTEOPOROSIS POSTMENOPAUSAL
     Dosage: UNK
     Route: 065
     Dates: start: 20170214

REACTIONS (11)
  - Dry mouth [Recovering/Resolving]
  - Oral discomfort [Recovering/Resolving]
  - Stomach mass [Unknown]
  - Muscle spasms [Recovering/Resolving]
  - Burning sensation [Recovering/Resolving]
  - Pollakiuria [Unknown]
  - Haematochezia [Recovered/Resolved]
  - Glossodynia [Recovering/Resolving]
  - Hypoaesthesia [Recovering/Resolving]
  - Anxiety [Unknown]
  - Arthralgia [Recovering/Resolving]

NARRATIVE: CASE EVENT DATE: 201702
